FAERS Safety Report 18811262 (Version 1)
Quarter: 2021Q1

REPORT INFORMATION
  Report Type: Spontaneous
  Country: US (occurrence: US)
  Receive Date: 20210129
  Receipt Date: 20210129
  Transmission Date: 20210419
  Serious: Yes (Life-Threatening, Hospitalization)
  Sender: FDA-Public Use
  Company Number: US-TEVA-2021-US-1872132

PATIENT
  Age: 22 Year
  Sex: Male

DRUGS (2)
  1. PROPOFOL. [Suspect]
     Active Substance: PROPOFOL
     Indication: SEDATION
     Route: 050
  2. EPOPROSTENOL. [Suspect]
     Active Substance: EPOPROSTENOL
     Indication: SEVERE ACUTE RESPIRATORY SYNDROME
     Route: 050

REACTIONS (3)
  - Drug ineffective [Unknown]
  - Hypertriglyceridaemia [Unknown]
  - Complication associated with device [Unknown]
